FAERS Safety Report 4827891-4 (Version None)
Quarter: 2005Q4

REPORT INFORMATION
  Report Type: 
  Country: None (occurrence: None)
  Receive Date: 20051110
  Receipt Date: 20051107
  Transmission Date: 20060501
  Serious: Yes (Other)
  Sender: FDA-Public Use
  Company Number: 200513894BCC

PATIENT

DRUGS (2)
  1. RID SHAMPOO [Suspect]
     Dosage: TOPICAL
     Route: 061
  2. RID SPRAY [Suspect]

REACTIONS (2)
  - HALLUCINATION [None]
  - MENTAL STATUS CHANGES [None]
